FAERS Safety Report 25710431 (Version 1)
Quarter: 2025Q3

REPORT INFORMATION
  Report Type: Spontaneous
  Country: US (occurrence: None)
  Receive Date: 20250820
  Receipt Date: 20250820
  Transmission Date: 20251020
  Serious: Yes (Other)
  Sender: FDA-CTU
  Company Number: None

PATIENT
  Age: 75 Year
  Sex: Female

DRUGS (1)
  1. EVEROLIMUS [Suspect]
     Active Substance: EVEROLIMUS
     Dates: start: 20230321, end: 20250724

REACTIONS (3)
  - Mouth ulceration [None]
  - Treatment noncompliance [None]
  - Economic problem [None]

NARRATIVE: CASE EVENT DATE: 20240724
